FAERS Safety Report 8202937-4 (Version None)
Quarter: 2012Q1

REPORT INFORMATION
  Report Type: 
  Country: None (occurrence: None)
  Receive Date: 20120312
  Receipt Date: 20120306
  Transmission Date: 20120608
  Serious: Yes (Life-Threatening, Hospitalization, Disabling)
  Sender: FDA-Public Use
  Company Number: US-CELGENEUS-163-21880-12011962

PATIENT
  Sex: Female
  Weight: 52.664 kg

DRUGS (12)
  1. DECADRON [Concomitant]
     Indication: MULTIPLE MYELOMA
     Dosage: 40 MILLIGRAM
     Route: 041
     Dates: start: 20101201, end: 20110113
  2. CALCIUM [Concomitant]
     Route: 065
  3. REVLIMID [Suspect]
     Dosage: 25 MILLIGRAM
     Route: 048
     Dates: start: 20120201
  4. REVLIMID [Suspect]
     Indication: MULTIPLE MYELOMA
     Dosage: 25 MILLIGRAM
     Route: 048
     Dates: start: 20101201, end: 20110110
  5. ACYCLOVIR [Concomitant]
     Route: 065
  6. BENEFIBER [Concomitant]
     Route: 065
  7. VELCADE [Concomitant]
     Indication: MULTIPLE MYELOMA
     Dosage: 1.75 MILLIGRAM
     Route: 041
     Dates: start: 20101129, end: 20110113
  8. ZOMETA [Concomitant]
     Indication: MULTIPLE MYELOMA
     Dosage: 4 MILLIGRAM
     Route: 041
     Dates: start: 20101123, end: 20101220
  9. DEPAKOTE [Concomitant]
     Route: 065
  10. VITAMIN B6 [Concomitant]
     Route: 065
  11. COUMADIN [Concomitant]
     Route: 065
  12. VITAMIN B-12 [Concomitant]
     Route: 065

REACTIONS (2)
  - CONSTIPATION [None]
  - DIVERTICULAR PERFORATION [None]
